FAERS Safety Report 18221512 (Version 1)
Quarter: 2020Q3

REPORT INFORMATION
  Report Type: Spontaneous
  Country: US (occurrence: US)
  Receive Date: 20200902
  Receipt Date: 20200902
  Transmission Date: 20201103
  Serious: Yes (Hospitalization, Other)
  Sender: FDA-Public Use
  Company Number: US-PFIZER INC-2018486952

PATIENT
  Age: 69 Year
  Sex: Female
  Weight: 44.45 kg

DRUGS (4)
  1. XELJANZ [Suspect]
     Active Substance: TOFACITINIB CITRATE
     Indication: RHEUMATOID ARTHRITIS
     Dosage: 5 MG, UNK
  2. TRELEGY ELLIPTA [Concomitant]
     Active Substance: FLUTICASONE FUROATE\UMECLIDINIUM BROMIDE\VILANTEROL TRIFENATATE
     Indication: CHRONIC OBSTRUCTIVE PULMONARY DISEASE
     Dosage: UNK (1 PUFF DAILY)
  3. XELJANZ [Suspect]
     Active Substance: TOFACITINIB CITRATE
     Dosage: 5 MG, 2X/DAY (5MG TABLET TWICE A DAY BY MOUTH)
     Route: 048
  4. METHOTREXATE SODIUM. [Suspect]
     Active Substance: METHOTREXATE SODIUM
     Dosage: 20 MG, WEEKLY (TAKES 8 TABLETS A WEEK, 4 TABLETS ONE NIGHT AND THEN 4 TABLETS THE NEXT MORNING)

REACTIONS (2)
  - Illness [Unknown]
  - Sepsis [Recovered/Resolved]

NARRATIVE: CASE EVENT DATE: 202005
